FAERS Safety Report 4505242-2 (Version None)
Quarter: 2004Q4

REPORT INFORMATION
  Report Type: 
  Country: None (occurrence: None)
  Receive Date: 20041117
  Receipt Date: 20041117
  Transmission Date: 20050328
  Serious: No
  Sender: FDA-Public Use
  Company Number: None

PATIENT
  Age: 64 Year
  Sex: Female
  Weight: 108.4097 kg

DRUGS (1)
  1. DIFLUCAN [Suspect]
     Indication: VAGINITIS
     Dosage: ONCE A DAY

REACTIONS (1)
  - VAGINITIS [None]
